FAERS Safety Report 14371932 (Version 1)
Quarter: 2018Q1

REPORT INFORMATION
  Report Type: Spontaneous
  Country: US (occurrence: US)
  Receive Date: 20180109
  Receipt Date: 20180109
  Transmission Date: 20180509
  Serious: No
  Sender: FDA-Public Use
  Company Number: None

PATIENT
  Age: 15 Year
  Sex: Female
  Weight: 55.8 kg

DRUGS (3)
  1. CONCERTA [Concomitant]
     Active Substance: METHYLPHENIDATE HYDROCHLORIDE
  2. TRILEPTAL [Concomitant]
     Active Substance: OXCARBAZEPINE
  3. GEODON [Suspect]
     Active Substance: ZIPRASIDONE HYDROCHLORIDE\ZIPRASIDONE MESYLATE
     Dosage: ?          OTHER FREQUENCY:Q1700 WITH DINNER;?
     Route: 048
     Dates: start: 20171206, end: 20171210

REACTIONS (1)
  - Palpitations [None]

NARRATIVE: CASE EVENT DATE: 20171211
